FAERS Safety Report 9255016 (Version 1)
Quarter: 2013Q2

REPORT INFORMATION
  Report Type: Spontaneous
  Country: ES (occurrence: ES)
  Receive Date: 20130425
  Receipt Date: 20130425
  Transmission Date: 20140414
  Serious: Yes (Death)
  Sender: FDA-Public Use
  Company Number: ES-ABBOTT-13P-144-1079619-00

PATIENT
  Age: 55 Year
  Sex: Male
  Weight: 90 kg

DRUGS (2)
  1. HUMIRA [Suspect]
     Indication: PSORIASIS
     Route: 058
     Dates: start: 201109
  2. ISCOVER [Concomitant]
     Indication: CAROTID ARTERY OCCLUSION

REACTIONS (2)
  - Death [Fatal]
  - Intracranial aneurysm [Fatal]
